FAERS Safety Report 4325981-6 (Version None)
Quarter: 2004Q1

REPORT INFORMATION
  Report Type: 
  Country: None (occurrence: None)
  Receive Date: 20040329
  Receipt Date: 20040315
  Transmission Date: 20041129
  Serious: Yes (Hospitalization)
  Sender: FDA-Public Use
  Company Number: BH-GLAXOSMITHKLINE-B0326746A

PATIENT
  Age: 41 Year
  Sex: Female

DRUGS (3)
  1. ZINACEF [Suspect]
     Dosage: 1.5G SINGLE DOSE
     Route: 042
     Dates: start: 20040303, end: 20040303
  2. MARCAINE [Concomitant]
     Route: 065
  3. OXYTOCIN [Concomitant]
     Route: 042

REACTIONS (2)
  - ANAPHYLACTIC REACTION [None]
  - CARDIAC ARREST [None]
